FAERS Safety Report 8604229-8 (Version None)
Quarter: 2012Q3

REPORT INFORMATION
  Report Type: 
  Country: None (occurrence: None)
  Receive Date: 20120820
  Receipt Date: 20120813
  Transmission Date: 20120928
  Serious: No
  Sender: FDA-Public Use
  Company Number: US-PFIZER INC-2012198667

PATIENT
  Age: 40 Year
  Sex: Male
  Weight: 147 kg

DRUGS (1)
  1. VIAGRA [Suspect]
     Indication: PENIS DISORDER
     Dosage: 100 MG, DAILY
     Route: 048

REACTIONS (3)
  - PENILE PAIN [None]
  - WRONG TECHNIQUE IN DRUG USAGE PROCESS [None]
  - PENIS DISORDER [None]
